FAERS Safety Report 23059779 (Version 1)
Quarter: 2023Q4

REPORT INFORMATION
  Report Type: Other
  Country: CA (occurrence: CA)
  Receive Date: 20231012
  Receipt Date: 20231012
  Transmission Date: 20240110
  Serious: Yes (Other)
  Sender: FDA-Public Use
  Company Number: CA-PFIZER INC-202300320668

PATIENT
  Age: 43 Year
  Sex: Female

DRUGS (13)
  1. EPINEPHRINE [Suspect]
     Active Substance: EPINEPHRINE
     Indication: Malaise
     Route: 065
  2. EPINEPHRINE [Suspect]
     Active Substance: EPINEPHRINE
     Indication: Face oedema
  3. COLCHICINE [Suspect]
     Active Substance: COLCHICINE
     Indication: Type IV hypersensitivity reaction
     Route: 065
  4. HYALURONIC ACID\LIDOCAINE HYDROCHLORIDE [Suspect]
     Active Substance: HYALURONIC ACID\LIDOCAINE HYDROCHLORIDE
     Indication: Connective tissue disorder
     Dosage: UNK
     Route: 065
  5. HYALURONIC ACID\LIDOCAINE HYDROCHLORIDE [Suspect]
     Active Substance: HYALURONIC ACID\LIDOCAINE HYDROCHLORIDE
     Dosage: UNK
     Route: 065
  6. PREDNISONE [Suspect]
     Active Substance: PREDNISONE
     Indication: Type IV hypersensitivity reaction
     Route: 048
  7. SPIKEVAX (ELASOMERAN) [Suspect]
     Active Substance: ELASOMERAN
     Indication: COVID-19 immunisation
     Dosage: UNK
     Route: 065
  8. SPIKEVAX (ELASOMERAN) [Suspect]
     Active Substance: ELASOMERAN
     Dosage: UNK
     Route: 065
  9. CEFADROXIL [Concomitant]
     Active Substance: CEFADROXIL
     Indication: Antibiotic therapy
  10. CEPHALEXIN [Concomitant]
     Active Substance: CEPHALEXIN
     Indication: Antibiotic therapy
     Route: 065
  11. DOXYCYCLINE [Concomitant]
     Active Substance: DOXYCYCLINE
     Indication: Antibiotic therapy
     Route: 065
  12. HYALURONIDASE [Concomitant]
     Active Substance: HYALURONIDASE
     Route: 065
  13. PERINDOPRIL [Concomitant]
     Active Substance: PERINDOPRIL
     Route: 065

REACTIONS (4)
  - Drug ineffective [Unknown]
  - Deformity [Unknown]
  - Psychomotor retardation [Unknown]
  - Type IV hypersensitivity reaction [Unknown]
